FAERS Safety Report 16479037 (Version 1)
Quarter: 2020Q3

REPORT INFORMATION
  Report Type: Report from Study
  Country: US (occurrence: US)
  Receive Date: 20190626
  Receipt Date: 20190626
  Transmission Date: 20201105
  Serious: Yes (Other)
  Sender: FDA-Public Use
  Company Number: US-PFIZER INC-2019265682

PATIENT

DRUGS (2)
  1. GEMCITABINE HYDROCHLORIDE. [Suspect]
     Active Substance: GEMCITABINE HYDROCHLORIDE
     Indication: NEOPLASM MALIGNANT
     Dosage: 1000 MG/M2, CYCLIC (ON D1 AND D8)
     Route: 042
  2. TRX?518. [Suspect]
     Active Substance: TRX-518
     Indication: NEOPLASM MALIGNANT
     Dosage: D2 OF A 21?DAY CYCLE IN TWO ESCALATION COHORTS (2MG/KG OR 4MG/KG LOAD[L] IN C1 FOLLOWED BY 1, CYCLIC

REACTIONS (4)
  - Lymphopenia [Unknown]
  - Anaemia [Unknown]
  - Hypokalaemia [Unknown]
  - Hypoalbuminaemia [Unknown]
